FAERS Safety Report 7655115-1 (Version None)
Quarter: 2011Q3

REPORT INFORMATION
  Report Type: 
  Country: None (occurrence: None)
  Receive Date: 20110804
  Receipt Date: 20110725
  Transmission Date: 20111222
  Serious: Yes (Death, Hospitalization)
  Sender: FDA-Public Use
  Company Number: CA-JNJFOC-20110411349

PATIENT
  Sex: Female
  Weight: 32.66 kg

DRUGS (1)
  1. REMICADE [Suspect]
     Indication: TAKAYASU'S ARTERITIS
     Dosage: ONLY DOSE RECEIVED
     Route: 042
     Dates: start: 20110419

REACTIONS (2)
  - CEREBROVASCULAR ACCIDENT [None]
  - CONVULSION [None]
